FAERS Safety Report 6890997-2 (Version None)
Quarter: 2010Q3

REPORT INFORMATION
  Report Type: 
  Country: None (occurrence: None)
  Receive Date: 20100731
  Receipt Date: 20090503
  Transmission Date: 20110219
  Serious: No
  Sender: FDA-Public Use
  Company Number: US-PFIZER INC-2009173516

PATIENT
  Sex: Female
  Weight: 63.946 kg

DRUGS (5)
  1. LIPITOR [Suspect]
     Indication: BLOOD CHOLESTEROL INCREASED
     Dosage: 20 MG, 1X/DAY
     Dates: start: 20081119, end: 20090219
  2. CLARITIN [Suspect]
     Dosage: UNK
  3. TOPAMAX [Concomitant]
     Indication: MIGRAINE
     Dosage: UNK
  4. TRAZODONE [Concomitant]
     Indication: INSOMNIA
     Dosage: UNK
  5. PHENTERMINE [Concomitant]
     Dosage: UNK

REACTIONS (4)
  - ALOPECIA [None]
  - CRYING [None]
  - NAUSEA [None]
  - WRONG TECHNIQUE IN DRUG USAGE PROCESS [None]
